FAERS Safety Report 10235212 (Version 1)
Quarter: 2014Q2

REPORT INFORMATION
  Report Type: Spontaneous
  Country: US (occurrence: None)
  Receive Date: 20140611
  Receipt Date: 20140611
  Transmission Date: 20141212
  Serious: Yes (Hospitalization)
  Sender: FDA-Public Use
  Company Number: 2014AP003256

PATIENT
  Age: 38 Year
  Sex: Female
  Weight: 51 kg

DRUGS (6)
  1. FERRIPROX [Suspect]
     Indication: THALASSAEMIA
     Route: 048
     Dates: start: 20140131
  2. LANTUS (INSULIN GLARGINE) [Concomitant]
  3. HUMALOG (INSULIN LSPRO) [Concomitant]
  4. LASIX (FUROSEMIDE) [Concomitant]
  5. DIGOXIN (DIGOXIN) [Concomitant]
  6. FLOMAX (MORNIFLUMATE) [Concomitant]

REACTIONS (4)
  - Pneumonia [None]
  - Joint swelling [None]
  - Peripheral swelling [None]
  - Human metapneumovirus test positive [None]
